FAERS Safety Report 10211164 (Version 1)
Quarter: 2014Q2

REPORT INFORMATION
  Report Type: Spontaneous
  Country: US (occurrence: US)
  Receive Date: 20140602
  Receipt Date: 20140602
  Transmission Date: 20141212
  Serious: No
  Sender: FDA-Public Use
  Company Number: US-ABBVIE-13P-163-1135942-00

PATIENT
  Age: 27 Year
  Sex: Male
  Weight: 90.8 kg

DRUGS (2)
  1. MARINOL [Suspect]
     Indication: TOURETTE^S DISORDER
     Dates: start: 20130813, end: 20130815
  2. MARINOL [Suspect]
     Dates: start: 20130819

REACTIONS (11)
  - Wrong technique in drug usage process [Unknown]
  - Euphoric mood [Recovered/Resolved]
  - Pyrexia [Recovered/Resolved]
  - Nausea [Recovered/Resolved]
  - Vomiting [Recovered/Resolved]
  - Abdominal pain [Recovered/Resolved]
  - Dizziness [Recovered/Resolved]
  - Abdominal pain [Recovered/Resolved]
  - Tremor [Recovered/Resolved]
  - Decreased appetite [Recovered/Resolved]
  - Off label use [Unknown]
